FAERS Safety Report 8351433-2 (Version None)
Quarter: 2012Q2

REPORT INFORMATION
  Report Type: 
  Country: None (occurrence: None)
  Receive Date: 20120510
  Receipt Date: 20120508
  Transmission Date: 20120825
  Serious: Yes (Other)
  Sender: FDA-Public Use
  Company Number: IE-ROCHE-1063754

PATIENT
  Age: 76 Year
  Sex: Male

DRUGS (2)
  1. MABTHERA [Suspect]
     Dosage: IN 50 ML
  2. MABTHERA [Suspect]
     Indication: NEOPLASM MALIGNANT
     Dosage: IN 10 ML

REACTIONS (4)
  - RASH [None]
  - OXYGEN SATURATION DECREASED [None]
  - WHEEZING [None]
  - URTICARIA [None]
